FAERS Safety Report 7340588-4 (Version None)
Quarter: 2011Q1

REPORT INFORMATION
  Report Type: 
  Country: None (occurrence: None)
  Receive Date: 20110309
  Receipt Date: 20110228
  Transmission Date: 20110831
  Serious: Yes (Other)
  Sender: FDA-Public Use
  Company Number: PHFR2011GB01598

PATIENT

DRUGS (1)
  1. TEGRETOL [Suspect]
     Dosage: 100 MG, BID2SDO
     Route: 048

REACTIONS (1)
  - CELLULITIS [None]
